FAERS Safety Report 24739487 (Version 1)
Quarter: 2024Q4

REPORT INFORMATION
  Report Type: Spontaneous
  Country: US (occurrence: None)
  Receive Date: 20241216
  Receipt Date: 20241216
  Transmission Date: 20250115
  Serious: Yes (Hospitalization)
  Sender: Public
  Company Number: None

PATIENT
  Age: 57 Year
  Sex: Male

DRUGS (1)
  1. NIVOLUMAB [Suspect]
     Active Substance: NIVOLUMAB
     Indication: Metastatic renal cell carcinoma
     Dates: start: 20240918, end: 20241016

REACTIONS (8)
  - Hyperhidrosis [None]
  - Hypotension [None]
  - Chills [None]
  - Tachycardia [None]
  - Infusion related reaction [None]
  - Unresponsive to stimuli [None]
  - Pallor [None]
  - Electrocardiogram QT prolonged [None]

NARRATIVE: CASE EVENT DATE: 20241016
